FAERS Safety Report 4636840-3 (Version None)
Quarter: 2005Q2

REPORT INFORMATION
  Report Type: 
  Country: None (occurrence: None)
  Receive Date: 20050414
  Receipt Date: 20050404
  Transmission Date: 20051028
  Serious: Yes (Other)
  Sender: FDA-Public Use
  Company Number: 2005-02-1164

PATIENT
  Age: 45 Year
  Sex: Female
  Weight: 105.6881 kg

DRUGS (1)
  1. NASONEX [Suspect]
     Indication: RHINITIS
     Dosage: 2 SPRAYS ID NASAL SPRAY
     Route: 045

REACTIONS (3)
  - DYSPNOEA [None]
  - OROPHARYNGEAL SWELLING [None]
  - THROAT TIGHTNESS [None]
